FAERS Safety Report 22102798 (Version 2)
Quarter: 2023Q1

REPORT INFORMATION
  Report Type: Spontaneous
  Country: US (occurrence: US)
  Receive Date: 20230316
  Receipt Date: 20230320
  Transmission Date: 20230418
  Serious: Yes (Other)
  Sender: FDA-Public Use
  Company Number: US-CSLP-12804348714-V12137977-47

PATIENT
  Age: 22 Year
  Sex: Male

DRUGS (1)
  1. ANTICOAGULANT SODIUM CITRATE [Suspect]
     Active Substance: SODIUM CITRATE
     Indication: Anticoagulant therapy
     Route: 050
     Dates: start: 20230309, end: 20230309

REACTIONS (23)
  - Loss of consciousness [Recovered/Resolved]
  - Pallor [Unknown]
  - Chest pain [Unknown]
  - Flushing [Unknown]
  - Hyperhidrosis [Unknown]
  - Asthenia [Unknown]
  - Anxiety [Unknown]
  - Swollen tongue [Unknown]
  - Movement disorder [Unknown]
  - Cold sweat [Unknown]
  - Dyspnoea [Unknown]
  - Pain [Unknown]
  - Feeling hot [Unknown]
  - Nausea [Unknown]
  - Muscle spasms [Recovered/Resolved]
  - Chest discomfort [Unknown]
  - Pharyngeal swelling [Unknown]
  - Swelling face [Unknown]
  - Muscle tightness [Unknown]
  - Throat tightness [Unknown]
  - Oropharyngeal pain [Unknown]
  - Hypersensitivity [Unknown]
  - Panic attack [Unknown]

NARRATIVE: CASE EVENT DATE: 20230309
